FAERS Safety Report 10173309 (Version 1)
Quarter: 2014Q2

REPORT INFORMATION
  Report Type: Spontaneous
  Country: CN (occurrence: CN)
  Receive Date: 20140515
  Receipt Date: 20140515
  Transmission Date: 20141212
  Serious: Yes (Other)
  Sender: FDA-Public Use
  Company Number: CN-BAXTER-2014BAX023338

PATIENT
  Age: 35 Year
  Sex: Female

DRUGS (1)
  1. 20% MANNITOL INJECTION [Suspect]
     Indication: BACK PAIN
     Route: 041
     Dates: start: 20130703, end: 20130703

REACTIONS (2)
  - Face oedema [Recovering/Resolving]
  - Rash pruritic [Recovering/Resolving]
